FAERS Safety Report 7481886-3 (Version None)
Quarter: 2011Q2

REPORT INFORMATION
  Report Type: 
  Country: None (occurrence: None)
  Receive Date: 20110506
  Receipt Date: 20110422
  Transmission Date: 20111010
  Serious: Yes (Other)
  Sender: FDA-Public Use
  Company Number: 031603

PATIENT
  Sex: Female

DRUGS (1)
  1. CIMZIA [Suspect]
     Indication: CROHN'S DISEASE
     Dosage: SUBCUTANEOUS
     Route: 058
     Dates: start: 20110311

REACTIONS (5)
  - URTICARIA [None]
  - HYPERSOMNIA [None]
  - FATIGUE [None]
  - ABDOMINAL PAIN UPPER [None]
  - ARTHRALGIA [None]
